FAERS Safety Report 10347960 (Version 2)
Quarter: 2014Q3

REPORT INFORMATION
  Report Type: Spontaneous
  Country: US (occurrence: None)
  Receive Date: 20140725
  Receipt Date: 20140808
  Transmission Date: 20150326
  Serious: Yes (Other)
  Sender: FDA-Public Use
  Company Number: 2014-US-008837

PATIENT
  Age: 54 Year
  Sex: Female
  Weight: 73.9 kg

DRUGS (3)
  1. XYREM [Suspect]
     Active Substance: SODIUM OXYBATE
     Indication: CATAPLEXY
     Route: 048
     Dates: start: 20140619, end: 2014
  2. XOLAIR [Concomitant]
     Active Substance: OMALIZUMAB
  3. XYREM [Suspect]
     Active Substance: SODIUM OXYBATE
     Indication: NARCOLEPSY
     Route: 048
     Dates: start: 20140619, end: 2014

REACTIONS (18)
  - Dizziness [None]
  - Blood glucose fluctuation [None]
  - Dehydration [None]
  - Neck pain [None]
  - Hypertension [None]
  - Disorientation [None]
  - Confusional state [None]
  - Muscle swelling [None]
  - Cataplexy [None]
  - Drug dose omission [None]
  - Aspiration [None]
  - Asthma [None]
  - Sinus congestion [None]
  - Rash [None]
  - Diarrhoea [None]
  - Vomiting [None]
  - Nausea [None]
  - Memory impairment [None]

NARRATIVE: CASE EVENT DATE: 2014
